FAERS Safety Report 5390255-1 (Version None)
Quarter: 2007Q3

REPORT INFORMATION
  Report Type: 
  Country: None (occurrence: None)
  Receive Date: 20070718
  Receipt Date: 20070710
  Transmission Date: 20080115
  Serious: Yes (Other)
  Sender: FDA-Public Use
  Company Number: US-ASTRAZENECA-2007UW16133

PATIENT
  Age: 86 Year
  Sex: Male
  Weight: 72.6 kg

DRUGS (2)
  1. ZOLADEX [Suspect]
     Route: 058
     Dates: start: 20040101
  2. LIPITOR [Concomitant]

REACTIONS (4)
  - EYE ROLLING [None]
  - HOT FLUSH [None]
  - LOSS OF CONSCIOUSNESS [None]
  - UNEVALUABLE EVENT [None]
